FAERS Safety Report 26123355 (Version 1)
Quarter: 2025Q4

REPORT INFORMATION
  Report Type: Report from Study
  Country: EG (occurrence: EG)
  Receive Date: 20251204
  Receipt Date: 20251204
  Transmission Date: 20260118
  Serious: Yes (Other)
  Sender: NOVARTIS
  Company Number: EG-002147023-NVSC2025EG149761

PATIENT
  Age: 51 Year
  Sex: Female

DRUGS (7)
  1. KISQALI [Suspect]
     Active Substance: RIBOCICLIB SUCCINATE
     Indication: Breast cancer metastatic
     Dosage: 200 MG, QD (3 TABLETS ONCE DAILY FOR 21 DAYS AND 7 DAYS OFF)
     Route: 048
     Dates: start: 20250919, end: 20251118
  2. HIRUDIN [Concomitant]
     Active Substance: HIRUDIN
     Indication: Inflammation
     Dosage: UNK (GEL) (TOPICAL), PRN
     Route: 065
     Dates: start: 20250921
  3. HIRUDIN [Concomitant]
     Active Substance: HIRUDIN
     Indication: Swelling
  4. Antodine [Concomitant]
     Indication: Prophylaxis
     Dosage: 40 MG, QD (STRENGTH 40) (TABLET)
     Route: 048
     Dates: start: 20250919
  5. FASLODEX [Concomitant]
     Active Substance: FULVESTRANT
     Indication: Breast cancer metastatic
     Dosage: 500 MG (FIRST MONTH 3 TIMES MONTHLY THEN ONCE MONTHLY), (STRENGTH 500 MG), (SOLUTION FOR INJECTION)
     Route: 030
     Dates: start: 20250920
  6. FASLODEX [Concomitant]
     Active Substance: FULVESTRANT
     Dosage: 250 MG, OTHER (2 INJECTIONS FIRST DAY THEN AFTER 14 DAYS THEN AFTER 29 DAYS THEN EVERY 28 DAY)
     Route: 030
  7. CYANOCOBALAMIN\PYRIDOXINE\THIAMINE [Concomitant]
     Active Substance: CYANOCOBALAMIN\PYRIDOXINE\THIAMINE
     Indication: Liver disorder
     Dosage: 00 MG, BID
     Route: 048
     Dates: start: 20251119

REACTIONS (6)
  - Hepatic enzyme increased [Not Recovered/Not Resolved]
  - Decreased immune responsiveness [Not Recovered/Not Resolved]
  - Mental disorder [Not Recovered/Not Resolved]
  - Injection site pain [Not Recovered/Not Resolved]
  - Injection site swelling [Not Recovered/Not Resolved]
  - Fatigue [Not Recovered/Not Resolved]

NARRATIVE: CASE EVENT DATE: 20250920
